APPROVED DRUG PRODUCT: CARBAMAZEPINE
Active Ingredient: CARBAMAZEPINE
Strength: 200MG
Dosage Form/Route: TABLET;ORAL
Application: A207798 | Product #002 | TE Code: BX
Applicant: UMEDICA LABORATORIES PRIVATE LTD
Approved: Apr 15, 2020 | RLD: No | RS: No | Type: RX